FAERS Safety Report 6705806-1 (Version None)
Quarter: 2010Q2

REPORT INFORMATION
  Report Type: 
  Country: None (occurrence: None)
  Receive Date: 20100503
  Receipt Date: 20100428
  Transmission Date: 20101027
  Serious: Yes (Other)
  Sender: FDA-Public Use
  Company Number: US-ROXANE LABORATORIES, INC.-2010-DE-02385GD

PATIENT
  Age: 67 Year
  Sex: Female

DRUGS (6)
  1. OMEPRAZOLE [Suspect]
  2. DIGOXIN [Suspect]
  3. DIURETIC [Suspect]
  4. ANTIBIOTICS [Suspect]
     Indication: PNEUMONIA
  5. STATIN [Concomitant]
     Indication: BLOOD CHOLESTEROL ABNORMAL
  6. ALBUTEROL [Concomitant]

REACTIONS (2)
  - ANAEMIA [None]
  - THROMBOCYTOPENIA [None]
